FAERS Safety Report 18820651 (Version 1)
Quarter: 2021Q1

REPORT INFORMATION
  Report Type: Spontaneous
  Country: FI (occurrence: FI)
  Receive Date: 20210202
  Receipt Date: 20210202
  Transmission Date: 20210419
  Serious: Yes (Hospitalization, Other)
  Sender: FDA-Public Use
  Company Number: FI-BAYER-2021-041988

PATIENT
  Age: 7 Month
  Sex: Male
  Weight: .71 kg

DRUGS (1)
  1. MIRENA [Suspect]
     Active Substance: LEVONORGESTREL
     Dosage: 20?G PER DAY, CONTINUOUSLY
     Route: 064

REACTIONS (5)
  - Bronchopulmonary dysplasia [None]
  - Foetal growth restriction [None]
  - Premature baby [None]
  - Foetal exposure during pregnancy [None]
  - Low birth weight baby [None]

NARRATIVE: CASE EVENT DATE: 20200728
